FAERS Safety Report 19500531 (Version 1)
Quarter: 2021Q3

REPORT INFORMATION
  Report Type: Spontaneous
  Country: FR (occurrence: FR)
  Receive Date: 20210706
  Receipt Date: 20210706
  Transmission Date: 20211014
  Serious: Yes (Death)
  Sender: FDA-Public Use
  Company Number: FR-TITAN PHARMACEUTICALS-2021TAN00156

PATIENT
  Sex: Female
  Weight: 2.45 kg

DRUGS (2)
  1. BUPRENORPHINE. [Suspect]
     Active Substance: BUPRENORPHINE
     Indication: MATERNAL CONDITION AFFECTING FOETUS
     Dosage: 8 MG, 1X/DAY
     Route: 064
  2. COCAINE [Suspect]
     Active Substance: COCAINE
     Route: 064

REACTIONS (2)
  - Death [Fatal]
  - Foetal exposure during pregnancy [Fatal]
